FAERS Safety Report 5960463-7 (Version None)
Quarter: 2008Q4

REPORT INFORMATION
  Report Type: 
  Country: None (occurrence: None)
  Receive Date: 20081120
  Receipt Date: 20081111
  Transmission Date: 20090506
  Serious: No
  Sender: FDA-Public Use
  Company Number: US-B.I. PHARMACEUTICALS,INC./RIDGEFIELD-2008-BP-17259PF

PATIENT
  Sex: Female
  Weight: 56 kg

DRUGS (15)
  1. SPIRIVA [Suspect]
     Indication: CHRONIC OBSTRUCTIVE PULMONARY DISEASE
  2. CHANTIX [Suspect]
     Indication: SMOKING CESSATION THERAPY
     Dosage: .5MG
     Dates: start: 20081031, end: 20081102
  3. SYMBICORT [Suspect]
     Indication: CHRONIC OBSTRUCTIVE PULMONARY DISEASE
  4. LEVOTHYROXINE SODIUM [Concomitant]
  5. FLUOXETINE [Concomitant]
  6. CRESTOR [Concomitant]
  7. BUPROPION HCL [Concomitant]
  8. BUPROPION HCL [Concomitant]
  9. PLAVIX [Concomitant]
  10. LISINOPRIL [Concomitant]
  11. DIGOXIN [Concomitant]
  12. ASPIRIN [Concomitant]
  13. ALBUTEROL [Concomitant]
  14. CALCIUM [Concomitant]
  15. VITAMIN D [Concomitant]

REACTIONS (2)
  - DRUG INEFFECTIVE [None]
  - DRUG INTERACTION [None]
